FAERS Safety Report 5836794-8 (Version None)
Quarter: 2008Q3

REPORT INFORMATION
  Report Type: 
  Country: None (occurrence: None)
  Receive Date: 20080806
  Receipt Date: 20080806
  Transmission Date: 20090109
  Serious: No
  Sender: FDA-Public Use
  Company Number: None

PATIENT
  Sex: Female
  Weight: 75.7507 kg

DRUGS (1)
  1. CEFTRIAXONE [Suspect]
     Indication: PAROTITIS
     Dosage: 1GM EVERY DAY IV DRIP
     Route: 041
     Dates: start: 20080801, end: 20080802

REACTIONS (2)
  - RASH ERYTHEMATOUS [None]
  - RASH GENERALISED [None]
